FAERS Safety Report 8164132-7 (Version None)
Quarter: 2012Q1

REPORT INFORMATION
  Report Type: 
  Country: None (occurrence: None)
  Receive Date: 20120224
  Receipt Date: 20120211
  Transmission Date: 20120608
  Serious: Yes (Other)
  Sender: FDA-Public Use
  Company Number: CHPA2012US003126

PATIENT
  Sex: Male

DRUGS (1)
  1. EXCEDRIN TENSION HEADACHE CAPLETS [Suspect]
     Indication: HEADACHE
     Dosage: 1 DF, UNK
     Route: 048

REACTIONS (3)
  - HYPERVENTILATION [None]
  - DYSPNOEA [None]
  - UNDERDOSE [None]
